FAERS Safety Report 6169454-7 (Version None)
Quarter: 2009Q2

REPORT INFORMATION
  Report Type: 
  Country: None (occurrence: None)
  Receive Date: 20090428
  Receipt Date: 20090427
  Transmission Date: 20091009
  Serious: Yes (Hospitalization)
  Sender: FDA-Public Use
  Company Number: PHHO2006HU13845

PATIENT
  Sex: Female
  Weight: 73 kg

DRUGS (2)
  1. CGS 20267 T30748+ [Suspect]
     Indication: BREAST CANCER
     Dosage: 2.5 MG, QD-2 YEARS
     Route: 048
     Dates: start: 20011205
  2. TAMOXIFEN CITRATE [Suspect]
     Dosage: 20 MG, QD
     Dates: end: 20060821

REACTIONS (9)
  - ARTERIOSCLEROSIS [None]
  - ASTHENIA [None]
  - CEREBRAL ARTERY THROMBOSIS [None]
  - CEREBRAL ATROPHY [None]
  - CEREBROVASCULAR DISORDER [None]
  - GAIT DISTURBANCE [None]
  - LACUNAR INFARCTION [None]
  - SPEECH DISORDER [None]
  - VASCULAR ENCEPHALOPATHY [None]
